FAERS Safety Report 16205329 (Version 2)
Quarter: 2019Q2

REPORT INFORMATION
  Report Type: Spontaneous
  Country: QA (occurrence: QA)
  Receive Date: 20190417
  Receipt Date: 20190520
  Transmission Date: 20190711
  Serious: Yes (Life-Threatening, Hospitalization, Other)
  Sender: FDA-Public Use
  Company Number: QA-LUPIN PHARMACEUTICALS INC.-2019-02397

PATIENT
  Age: 50 Year
  Sex: Male

DRUGS (32)
  1. ASPIRINE [Concomitant]
     Active Substance: ASPIRIN
     Dosage: 75 MILLIGRAM, QD
     Route: 065
  2. HEPARIN [Concomitant]
     Active Substance: HEPARIN SODIUM
     Indication: THROMBOSIS PROPHYLAXIS
     Dosage: 5000 UNIT, BID
     Route: 058
  3. AMIODARONE [Concomitant]
     Active Substance: AMIODARONE
     Indication: THROMBOSIS PROPHYLAXIS
     Dosage: 150 MILLIGRAM (2 TOTAL)
     Route: 042
  4. SUXAMETHONIUM [Concomitant]
     Active Substance: SUCCINYLCHOLINE
     Indication: THROMBOSIS PROPHYLAXIS
     Dosage: 100 MILLIGRAM (01 TOTAL)
     Route: 042
  5. RANITIDINE. [Concomitant]
     Active Substance: RANITIDINE
     Indication: THROMBOSIS PROPHYLAXIS
     Dosage: 150 MILLIGRAM, QD
     Route: 048
  6. LANSOPRAZOLE. [Suspect]
     Active Substance: LANSOPRAZOLE
     Indication: PROPHYLAXIS
     Dosage: 30 MILLIGRAM, QD
  7. BISOPROLOL [Concomitant]
     Active Substance: BISOPROLOL
     Indication: THROMBOSIS PROPHYLAXIS
     Dosage: 2.5 MILLIGRAM, QD
     Route: 048
  8. FENTANYL. [Concomitant]
     Active Substance: FENTANYL
     Indication: THROMBOSIS PROPHYLAXIS
     Dosage: UNK
     Route: 042
  9. LACTATED RINGERS SOLUTION [Concomitant]
     Active Substance: CALCIUM CHLORIDE\POTASSIUM CHLORIDE\SODIUM CHLORIDE\SODIUM LACTATE
     Indication: THROMBOSIS PROPHYLAXIS
     Dosage: 1500 MILLILITER
     Route: 042
  10. REMIFENTANIL [Concomitant]
     Active Substance: REMIFENTANIL
     Indication: THROMBOSIS PROPHYLAXIS
     Dosage: UNK, (CONTINUOUS)
     Route: 042
  11. FUROSEMIDE. [Concomitant]
     Active Substance: FUROSEMIDE
     Indication: THROMBOSIS PROPHYLAXIS
     Dosage: 80 MILLIGRAM, QD
     Route: 042
  12. CEFTRIAXONE. [Suspect]
     Active Substance: CEFTRIAXONE
     Indication: PRODUCT USED FOR UNKNOWN INDICATION
     Dosage: 2 GRAM
     Route: 042
  13. ASPIRINE [Concomitant]
     Active Substance: ASPIRIN
     Indication: THROMBOSIS PROPHYLAXIS
     Dosage: 100 MILLIGRAM, QD
     Route: 048
  14. BISOPROLOL [Concomitant]
     Active Substance: BISOPROLOL
     Dosage: 2.5 MILLIGRAM, BID
     Route: 048
  15. ATROPINE. [Concomitant]
     Active Substance: ATROPINE
     Indication: THROMBOSIS PROPHYLAXIS
     Dosage: 1 MILLIGRAM, (1 TOTAL)
     Route: 042
  16. PANTOPRAZOLE [Concomitant]
     Active Substance: PANTOPRAZOLE
     Indication: PRODUCT USED FOR UNKNOWN INDICATION
     Dosage: 40 MILLIGRAM, QD
     Route: 065
  17. EPINEPHRINE. [Concomitant]
     Active Substance: EPINEPHRINE
     Indication: THROMBOSIS PROPHYLAXIS
     Dosage: 1 MILLIGRAM (12 TORAL)
     Route: 042
  18. MIDAZOLAM [Concomitant]
     Active Substance: MIDAZOLAM HYDROCHLORIDE
     Indication: THROMBOSIS PROPHYLAXIS
     Dosage: 5 MILLIGRAM, (2 TOTAL)
     Route: 042
  19. FENTANYL. [Concomitant]
     Active Substance: FENTANYL
     Dosage: 100 MCG (2 TOTAL)
     Route: 042
  20. SODIUM BICARBONATE. [Concomitant]
     Active Substance: SODIUM BICARBONATE
     Indication: THROMBOSIS PROPHYLAXIS
     Dosage: 50 MILLIEQUIVALENT, (2 TOTAL)
     Route: 042
  21. LEVOFLOXACIN. [Concomitant]
     Active Substance: LEVOFLOXACIN
     Indication: PRODUCT USED FOR UNKNOWN INDICATION
     Dosage: 500 MILLIGRAM, QD
     Route: 065
  22. PARACETAMOL [Concomitant]
     Active Substance: ACETAMINOPHEN
     Indication: THROMBOSIS PROPHYLAXIS
     Dosage: 1 GRAM, QID
     Route: 042
  23. METRONIDAZOLE. [Concomitant]
     Active Substance: METRONIDAZOLE
     Indication: THROMBOSIS PROPHYLAXIS
     Dosage: 500 MILLIGRAM (8 HOURS)
     Route: 065
  24. PROPOFOL. [Concomitant]
     Active Substance: PROPOFOL
     Indication: THROMBOSIS PROPHYLAXIS
     Dosage: UNK
     Route: 042
  25. CALCIUM CHLORIDE. [Concomitant]
     Active Substance: CALCIUM CHLORIDE
     Indication: THROMBOSIS PROPHYLAXIS
     Dosage: 1 GRAM, (1 TOTAL)
     Route: 042
  26. ROSUVASTATIN. [Suspect]
     Active Substance: ROSUVASTATIN
     Indication: PRODUCT USED FOR UNKNOWN INDICATION
     Dosage: 10 MILLIGRAM, QD
     Route: 065
  27. CLOPIDOGREL [Concomitant]
     Active Substance: CLOPIDOGREL BISULFATE
     Indication: THROMBOSIS PROPHYLAXIS
     Dosage: 75 MILLIGRAM, QD
     Route: 065
  28. NOREPINEPHRINE. [Concomitant]
     Active Substance: NOREPINEPHRINE
     Indication: THROMBOSIS PROPHYLAXIS
     Dosage: UNK (CONTINUOUS)
     Route: 065
  29. LANSOPRAZOLE. [Suspect]
     Active Substance: LANSOPRAZOLE
     Dosage: 30 MILLIGRAM, QD
  30. METFORMIN [Suspect]
     Active Substance: METFORMIN HYDROCHLORIDE
     Indication: PRODUCT USED FOR UNKNOWN INDICATION
     Dosage: 500 MILLIGRAM, BID
     Route: 065
  31. HEPARIN [Concomitant]
     Active Substance: HEPARIN SODIUM
     Dosage: UNK
     Route: 058
  32. NORMAL SALINE [Concomitant]
     Active Substance: SODIUM CHLORIDE
     Indication: THROMBOSIS PROPHYLAXIS
     Dosage: 1000 MILLILITER
     Route: 042

REACTIONS (7)
  - Bradycardia [Recovered/Resolved]
  - Acute kidney injury [Recovering/Resolving]
  - Critical illness [Unknown]
  - Anaphylactic reaction [Recovered/Resolved]
  - Hepatic enzyme increased [Unknown]
  - Thrombocytopenia [Recovered/Resolved]
  - Cardiac arrest [Recovered/Resolved]
